FAERS Safety Report 9442125 (Version 2)
Quarter: 2013Q3

REPORT INFORMATION
  Report Type: Report from Study
  Country: CZ (occurrence: CZ)
  Receive Date: 20130806
  Receipt Date: 20130816
  Transmission Date: 20140515
  Serious: Yes (Hospitalization)
  Sender: FDA-Public Use
  Company Number: CZ-MPIJNJ-2013-05675

PATIENT
  Sex: 0

DRUGS (3)
  1. VELCADE [Suspect]
     Indication: PLASMA CELL MYELOMA
     Dosage: 2.7 MG, CYCLIC
     Route: 058
     Dates: start: 20130709, end: 20130712
  2. CYCLOPHOSPHAMIDE [Suspect]
     Indication: PLASMA CELL MYELOMA
     Dosage: 1000 MG, CYCLIC
     Route: 042
     Dates: start: 20130709, end: 20130712
  3. DEXAMETHASONE [Suspect]
     Indication: PLASMA CELL MYELOMA
     Dosage: 40 MG, CYCLIC
     Route: 048
     Dates: start: 20130709, end: 20130713

REACTIONS (1)
  - Muscle spasms [Recovered/Resolved with Sequelae]
